FAERS Safety Report 12618293 (Version 3)
Quarter: 2016Q4

REPORT INFORMATION
  Report Type: Report from Study
  Country: FR (occurrence: FR)
  Receive Date: 20160803
  Receipt Date: 20161028
  Transmission Date: 20170207
  Serious: Yes (Hospitalization, Congenital Anomaly)
  Sender: FDA-Public Use
  Company Number: PHHY2016FR103392

PATIENT
  Sex: Female
  Weight: 1.8 kg

DRUGS (3)
  1. TASIGNA [Suspect]
     Active Substance: NILOTINIB
     Indication: FOETAL EXPOSURE DURING PREGNANCY
     Dosage: (MATERNAL DOSE:300 MG,  2 DF DAILY)
     Route: 064
     Dates: start: 201511, end: 20151210
  2. GLIVEC [Suspect]
     Active Substance: IMATINIB MESYLATE
     Indication: FOETAL EXPOSURE DURING PREGNANCY
     Dosage: (MATERNAL DOSE: 400 MG, QD)
     Route: 064
     Dates: start: 20160523
  3. PEGASYS [Concomitant]
     Active Substance: PEGINTERFERON ALFA-2A
     Indication: FOETAL EXPOSURE DURING PREGNANCY
     Dosage: (MATERNAL DOSE: 180 UG PER WEEK)
     Route: 064
     Dates: start: 20151210, end: 20160523

REACTIONS (3)
  - Premature baby [Unknown]
  - Foetal exposure during pregnancy [Unknown]
  - Duodenal stenosis [Not Recovered/Not Resolved]

NARRATIVE: CASE EVENT DATE: 20151109
